FAERS Safety Report 5890421-2 (Version None)
Quarter: 2008Q3

REPORT INFORMATION
  Report Type: 
  Country: None (occurrence: None)
  Receive Date: 20080921
  Receipt Date: 20080910
  Transmission Date: 20090109
  Serious: Yes (Other)
  Sender: FDA-Public Use
  Company Number: BR-JNJFOC-20080902801

PATIENT
  Age: 7 Month
  Sex: Male

DRUGS (4)
  1. REMICADE [Suspect]
     Indication: CROHN'S DISEASE
     Dosage: WEEKS 0,2 + 6; TOTAL # INFUSIONS: 6
     Route: 042
  2. PREDNISONE TAB [Concomitant]
     Indication: CROHN'S DISEASE
  3. MERCAPTOPURINE [Concomitant]
     Indication: CROHN'S DISEASE
  4. DIPHENHYDRAMINE HCL [Concomitant]
     Indication: PREMEDICATION

REACTIONS (5)
  - CROHN'S DISEASE [None]
  - CYANOSIS [None]
  - DRUG INEFFECTIVE [None]
  - INFUSION RELATED REACTION [None]
  - OFF LABEL USE [None]
